FAERS Safety Report 5891496-7 (Version None)
Quarter: 2008Q3

REPORT INFORMATION
  Report Type: 
  Country: None (occurrence: None)
  Receive Date: 20080918
  Receipt Date: 20080903
  Transmission Date: 20090109
  Serious: Yes (Other)
  Sender: FDA-Public Use
  Company Number: 2008S1016454

PATIENT

DRUGS (3)
  1. ENALAPRIL MALEATE [Suspect]
     Indication: HYPERTENSION
     Dosage: 20 MG; DAILY, 10 MG; TWICE A DAY
     Dates: start: 20080301, end: 20080706
  2. AMLODIPINE [Concomitant]
  3. ESTRAMUSTIN [Concomitant]

REACTIONS (4)
  - LARYNGEAL OEDEMA [None]
  - OEDEMA MOUTH [None]
  - SENSATION OF FOREIGN BODY [None]
  - TONGUE OEDEMA [None]
